FAERS Safety Report 9528462 (Version 1)
Quarter: 2013Q3

REPORT INFORMATION
  Report Type: Spontaneous
  Country: CA (occurrence: CA)
  Receive Date: 20130917
  Receipt Date: 20130917
  Transmission Date: 20140515
  Serious: Yes (Life-Threatening, Other)
  Sender: FDA-Public Use
  Company Number: CA-ASTRAZENECA-2013SE67628

PATIENT
  Age: 73 Year
  Sex: Male
  Weight: 65 kg

DRUGS (12)
  1. XYLOCAINE [Suspect]
     Route: 042
  2. ALDACTONE [Concomitant]
  3. AMIODARONE [Concomitant]
  4. ASPIRIN [Concomitant]
  5. COLACE [Concomitant]
  6. COZAAR [Concomitant]
  7. IMDUR [Concomitant]
  8. K-DUR [Concomitant]
  9. LASIX [Concomitant]
  10. LIPITOR [Concomitant]
  11. NOVO-MEXILETINE [Concomitant]
  12. SYNTHROID [Concomitant]

REACTIONS (4)
  - Somnolence [Recovered/Resolved]
  - Coma [Recovered/Resolved]
  - Nausea [Recovered/Resolved]
  - Vomiting [Recovered/Resolved]
